FAERS Safety Report 17149113 (Version 2)
Quarter: 2020Q2

REPORT INFORMATION
  Report Type: Spontaneous
  Country: US (occurrence: US)
  Receive Date: 20191213
  Receipt Date: 20200406
  Transmission Date: 20200713
  Serious: No
  Sender: FDA-Public Use
  Company Number: US-BEH-2019110389

PATIENT
  Age: 19 Year
  Sex: Male

DRUGS (2)
  1. HIZENTRA [Suspect]
     Active Substance: HUMAN IMMUNOGLOBULIN G
     Dosage: 24 GRAM, QOW
     Route: 058
     Dates: start: 20190525
  2. HIZENTRA [Suspect]
     Active Substance: HUMAN IMMUNOGLOBULIN G
     Indication: HYPOGAMMAGLOBULINAEMIA
     Dosage: 24 GRAM, QOW
     Route: 058
     Dates: start: 20190522

REACTIONS (8)
  - Weight decreased [Unknown]
  - Headache [Unknown]
  - Treatment noncompliance [Unknown]
  - No adverse event [Unknown]
  - Injection site mass [Unknown]
  - Abdominal pain upper [Unknown]
  - Decreased appetite [Unknown]
  - Gastrointestinal disorder [Unknown]

NARRATIVE: CASE EVENT DATE: 202003
